FAERS Safety Report 7017562-0 (Version None)
Quarter: 2010Q3

REPORT INFORMATION
  Report Type: 
  Country: None (occurrence: None)
  Receive Date: 20100928
  Receipt Date: 20100714
  Transmission Date: 20110219
  Serious: No
  Sender: FDA-Public Use
  Company Number: US-MYLANLABS-2010S1012679

PATIENT
  Age: 60 Year
  Sex: Male

DRUGS (2)
  1. FLUOXETINE [Suspect]
     Dates: start: 20100701
  2. REMERON [Concomitant]

REACTIONS (2)
  - FAECES DISCOLOURED [None]
  - LIBIDO DISORDER [None]
